FAERS Safety Report 17638517 (Version 1)
Quarter: 2020Q2

REPORT INFORMATION
  Report Type: Spontaneous
  Country: US (occurrence: US)
  Receive Date: 20200407
  Receipt Date: 20200407
  Transmission Date: 20200713
  Serious: Yes (Hospitalization)
  Sender: FDA-Public Use
  Company Number: US-TEVA-2020-US-1218242

PATIENT
  Age: 89 Year
  Sex: Female

DRUGS (1)
  1. ERLOTINIB [Suspect]
     Active Substance: ERLOTINIB
     Indication: NON-SMALL CELL LUNG CANCER STAGE IV
     Dosage: SINCE LAST 2 YEARS
     Route: 065

REACTIONS (12)
  - Blindness [Recovering/Resolving]
  - Iridocele [Recovering/Resolving]
  - Endophthalmitis [Recovering/Resolving]
  - Blepharitis [Recovering/Resolving]
  - Ulcerative keratitis [Recovering/Resolving]
  - Corneal perforation [Recovering/Resolving]
  - Keratopathy [Recovering/Resolving]
  - Corneal defect [Recovering/Resolving]
  - Corneal infiltrates [Recovering/Resolving]
  - Cellulitis orbital [Recovering/Resolving]
  - Trichiasis [Recovering/Resolving]
  - Streptococcal infection [Recovering/Resolving]
